FAERS Safety Report 23888186 (Version 1)
Quarter: 2024Q2

REPORT INFORMATION
  Report Type: Spontaneous
  Country: US (occurrence: US)
  Receive Date: 20240523
  Receipt Date: 20240523
  Transmission Date: 20240715
  Serious: No
  Sender: FDA-Public Use
  Company Number: US-DRL-USA-LIT/USA/24/0007318

PATIENT
  Age: 88 Year
  Sex: Female

DRUGS (1)
  1. MINOCYCLINE [Suspect]
     Active Substance: MINOCYCLINE HYDROCHLORIDE
     Indication: Antibiotic therapy
     Dosage: INGESTED DOSE OF OVER 219G OVER3YEARS
     Route: 048
     Dates: start: 201809

REACTIONS (2)
  - Bradycardia [Recovering/Resolving]
  - Skin hyperpigmentation [Unknown]
